FAERS Safety Report 9619291 (Version 2)
Quarter: 2013Q4

REPORT INFORMATION
  Report Type: Spontaneous
  Country: BR (occurrence: BR)
  Receive Date: 20131014
  Receipt Date: 20131014
  Transmission Date: 20140711
  Serious: Yes (Other)
  Sender: FDA-Public Use
  Company Number: BR-BAYER-2013-085289

PATIENT
  Age: 30 Year
  Sex: Female
  Weight: 70 kg

DRUGS (2)
  1. YAZ (24) [Suspect]
     Dosage: UNK
     Route: 048
     Dates: start: 2013, end: 2013
  2. MIRENA [Suspect]
     Indication: CONTRACEPTION
     Dosage: 20 MCG/24HR, CONT
     Route: 015
     Dates: start: 20130517, end: 20130517

REACTIONS (9)
  - Nausea [None]
  - Chills [None]
  - Intentional drug misuse [None]
  - Multiple use of single-use product [None]
  - Device physical property issue [None]
  - Procedural pain [Not Recovered/Not Resolved]
  - Syncope [Not Recovered/Not Resolved]
  - Complication of device insertion [None]
  - Device difficult to use [None]
